FAERS Safety Report 4487903-7 (Version None)
Quarter: 2004Q4

REPORT INFORMATION
  Report Type: 
  Country: None (occurrence: None)
  Receive Date: 20041026
  Receipt Date: 20041013
  Transmission Date: 20050328
  Serious: Yes (Hospitalization)
  Sender: FDA-Public Use
  Company Number: USA040875504

PATIENT
  Age: 10 Year
  Sex: Female

DRUGS (1)
  1. HUMATROPE [Suspect]
     Indication: BODY HEIGHT BELOW NORMAL

REACTIONS (2)
  - CONDITION AGGRAVATED [None]
  - ECZEMA [None]
